FAERS Safety Report 4292635-4 (Version None)
Quarter: 2004Q1

REPORT INFORMATION
  Report Type: 
  Country: None (occurrence: None)
  Receive Date: 20040211
  Receipt Date: 20040204
  Transmission Date: 20041129
  Serious: Yes (Death, Other)
  Sender: FDA-Public Use
  Company Number: PHBS2004JP01722

PATIENT
  Age: 32 Year
  Sex: Male

DRUGS (8)
  1. CYCLOSPORINE [Suspect]
     Indication: APLASTIC ANAEMIA
     Route: 065
  2. CYCLOSPORINE [Suspect]
  3. ATGAM [Suspect]
  4. GRANULOCYTE COLONY STIMULATING FACTOR [Concomitant]
  5. CYCLOPHOSPHAMIDE [Concomitant]
     Dosage: 120 MG/KG/D
  6. METHOTREXATE [Concomitant]
  7. METHYLPREDNISOLONE [Suspect]
     Dosage: 1 MG/KG/D
  8. METHYLPREDNISOLONE [Suspect]
     Dosage: 1 G/D

REACTIONS (19)
  - ASPERGILLOSIS [None]
  - BLOOD BILIRUBIN INCREASED [None]
  - BLOOD LACTATE DEHYDROGENASE INCREASED [None]
  - BONE MARROW DEPRESSION [None]
  - COLITIS ISCHAEMIC [None]
  - CYTOMEGALOVIRUS ANTIGEN POSITIVE [None]
  - CYTOMEGALOVIRUS INFECTION [None]
  - DIARRHOEA HAEMORRHAGIC [None]
  - GRAFT VERSUS HOST DISEASE [None]
  - MULTI-ORGAN FAILURE [None]
  - MYELODYSPLASTIC SYNDROME [None]
  - PANCYTOPENIA [None]
  - PLEURAL EFFUSION [None]
  - PNEUMOCYSTIS CARINII PNEUMONIA [None]
  - RASH [None]
  - RED BLOOD CELL SCHISTOCYTES PRESENT [None]
  - RENAL FAILURE [None]
  - RESPIRATORY FAILURE [None]
  - THROMBOTIC MICROANGIOPATHY [None]
